FAERS Safety Report 9004390 (Version 1)
Quarter: 2013Q1

REPORT INFORMATION
  Report Type: Spontaneous
  Country: US (occurrence: None)
  Receive Date: 20130104
  Receipt Date: 20130104
  Transmission Date: 20140127
  Serious: No
  Sender: FDA-Public Use
  Company Number: None

PATIENT
  Sex: Male
  Weight: 65.77 kg

DRUGS (1)
  1. JANUVIA [Suspect]
     Indication: TYPE 2 DIABETES MELLITUS
     Dosage: 100MG  ONCE A DAY  ORAL
     Route: 048
     Dates: start: 201205, end: 201212

REACTIONS (2)
  - Respiratory tract infection [None]
  - Atypical pneumonia [None]
